FAERS Safety Report 9409050 (Version 2)
Quarter: 2013Q3

REPORT INFORMATION
  Report Type: Spontaneous
  Country: CA (occurrence: CA)
  Receive Date: 20130719
  Receipt Date: 20130823
  Transmission Date: 20140515
  Serious: Yes (Other)
  Sender: FDA-Public Use
  Company Number: CA-BAYER-2013-085773

PATIENT
  Age: 25 Year
  Sex: Female
  Weight: 63.49 kg

DRUGS (2)
  1. MIRENA [Suspect]
     Indication: CONTRACEPTION
     Dosage: 20 MCG/24HR, CONT
     Route: 015
     Dates: start: 20121220, end: 20130107
  2. BIAXIN [Concomitant]
     Dosage: 500 MG, UNK
     Dates: start: 20121214

REACTIONS (10)
  - Blindness [Not Recovered/Not Resolved]
  - Headache [Not Recovered/Not Resolved]
  - Neck pain [Not Recovered/Not Resolved]
  - Oophoritis [Not Recovered/Not Resolved]
  - Loss of consciousness [Not Recovered/Not Resolved]
  - Chills [None]
  - Asthenia [None]
  - Abdominal pain lower [None]
  - Pain in extremity [None]
  - Renal pain [None]
